FAERS Safety Report 4733271-2 (Version None)
Quarter: 2005Q3

REPORT INFORMATION
  Report Type: 
  Country: None (occurrence: None)
  Receive Date: 20050803
  Receipt Date: 20050727
  Transmission Date: 20060218
  Serious: Yes (Hospitalization)
  Sender: FDA-Public Use
  Company Number: US-BRISTOL-MYERS SQUIBB COMPANY-13053434

PATIENT
  Age: 61 Year
  Sex: Female

DRUGS (4)
  1. CETUXIMAB [Suspect]
     Indication: OESOPHAGEAL CARCINOMA
     Dosage: DAY 36 CHEMOTHERAPY HELD ON 26-JUL-05.
     Route: 042
     Dates: start: 20050712, end: 20050712
  2. CARBOPLATIN [Suspect]
     Indication: OESOPHAGEAL CARCINOMA
     Dosage: DAY 36 CHEMOTHERAPY HELD ON 26-JUL-05.
     Route: 042
     Dates: start: 20050712, end: 20050712
  3. PACLITAXEL [Suspect]
     Indication: OESOPHAGEAL CARCINOMA
     Dosage: DAY 36 CHEMOTHERAPY HELD ON 26-JUL-05.
     Route: 042
     Dates: start: 20050712, end: 20050712
  4. RADIATION THERAPY [Suspect]
     Indication: OESOPHAGEAL CARCINOMA
     Dosage: 1.8 GY DAILY.  HELD ON 25-JUL-2005.  RESUMED ON 26-JUL-2005.
     Dates: start: 20050701

REACTIONS (2)
  - DEHYDRATION [None]
  - OESOPHAGITIS [None]
